FAERS Safety Report 24013869 (Version 1)
Quarter: 2024Q2

REPORT INFORMATION
  Report Type: Spontaneous
  Country: US (occurrence: US)
  Receive Date: 20240626
  Receipt Date: 20240626
  Transmission Date: 20240716
  Serious: No
  Sender: FDA-Public Use
  Company Number: US-ALCON LABORATORIES-ALC2023US004860

PATIENT
  Sex: Male

DRUGS (2)
  1. PATADAY ONCE DAILY RELIEF [Suspect]
     Active Substance: OLOPATADINE HYDROCHLORIDE
     Indication: Eyelid irritation
     Dosage: ONE DROP IN EACH EYE, ONCE A DAY
     Route: 047
  2. PATADAY ONCE DAILY RELIEF [Suspect]
     Active Substance: OLOPATADINE HYDROCHLORIDE
     Indication: Hypersensitivity

REACTIONS (3)
  - Suspected product contamination [Unknown]
  - Reaction to preservatives [Recovered/Resolved]
  - Eye irritation [Recovered/Resolved]
